FAERS Safety Report 5944746-2 (Version None)
Quarter: 2008Q4

REPORT INFORMATION
  Report Type: 
  Country: None (occurrence: None)
  Receive Date: 20081105
  Receipt Date: 20081030
  Transmission Date: 20090506
  Serious: Yes (Hospitalization, Disabling)
  Sender: FDA-Public Use
  Company Number: SP02093

PATIENT
  Age: 65 Year
  Sex: Female
  Weight: 58.9676 kg

DRUGS (14)
  1. OSMOPREP [Suspect]
     Indication: COLONOSCOPY
     Dosage: 48 GM (32 TABLETS), ORAL
     Route: 048
     Dates: start: 20081007, end: 20081007
  2. ANGIOTENSIN RECEPTOR BLOCKERS [Concomitant]
  3. LISINOPRIL [Concomitant]
  4. METOPROLOL TARTRATE [Concomitant]
  5. ACETAMINOPHEN/HYDROCODONE BITARTRATE [Concomitant]
  6. HYOSCYAMINE SULFATE [Concomitant]
  7. SIMVASTATIN [Concomitant]
  8. MELOXICAM [Concomitant]
  9. PANTOPRAZOLE SODIUM [Concomitant]
  10. DICYCLOMINE [Concomitant]
  11. CLONAZEPAM [Concomitant]
  12. ESTRADIOL [Concomitant]
  13. CALCIUM [Concomitant]
  14. VITAMIN E [Concomitant]

REACTIONS (9)
  - ABDOMINAL DISTENSION [None]
  - ASTHENIA [None]
  - BLOOD SODIUM DECREASED [None]
  - DEHYDRATION [None]
  - DIARRHOEA [None]
  - HYPOPHAGIA [None]
  - NAUSEA [None]
  - RENAL FAILURE ACUTE [None]
  - VOMITING [None]
